FAERS Safety Report 7027263-0 (Version None)
Quarter: 2010Q4

REPORT INFORMATION
  Report Type: 
  Country: None (occurrence: None)
  Receive Date: 20101004
  Receipt Date: 20100928
  Transmission Date: 20110411
  Serious: Yes (Other)
  Sender: FDA-Public Use
  Company Number: CHPA2010US15309

PATIENT
  Age: 42 Year
  Sex: Female
  Weight: 98.413 kg

DRUGS (2)
  1. SLOW FE BROWN (NCH) [Suspect]
     Indication: RED BLOOD CELL COUNT DECREASED
     Dosage: 142 MG, QD
     Route: 048
     Dates: start: 20100927, end: 20100927
  2. SLOW FE BROWN (NCH) [Suspect]
     Indication: VISION BLURRED
     Dosage: 142 MG, QD
     Route: 048
     Dates: start: 20100621, end: 20100701

REACTIONS (5)
  - ABDOMINAL PAIN [None]
  - HAEMATOCHEZIA [None]
  - NAUSEA [None]
  - OFF LABEL USE [None]
  - RECTAL HAEMORRHAGE [None]
